FAERS Safety Report 8887063 (Version 1)
Quarter: 2012Q4

REPORT INFORMATION
  Report Type: 
  Country: TH (occurrence: TH)
  Receive Date: 20121105
  Receipt Date: 20121105
  Transmission Date: 20130627
  Serious: Yes (Other)
  Sender: FDA-Public Use
  Company Number: PHHY2012TH100481

PATIENT
  Age: 38 Year
  Sex: Male

DRUGS (4)
  1. CICLOSPORIN [Suspect]
     Indication: RENAL TRANSPLANT
     Dosage: 7 mg/kg, per day
  2. MYCOPHENOLATE MOFETIL [Suspect]
     Indication: RENAL TRANSPLANT
     Dosage: 750 mg, BID
  3. MYCOPHENOLATE MOFETIL [Suspect]
     Dosage: 2 g, per day
  4. METHYLPREDNISOLONE [Suspect]
     Indication: RENAL TRANSPLANT
     Route: 042

REACTIONS (4)
  - Glomerulonephritis minimal lesion [Recovered/Resolved]
  - Tubulointerstitial nephritis [Recovered/Resolved]
  - Kidney transplant rejection [Recovered/Resolved]
  - Proteinuria [Recovered/Resolved]
